FAERS Safety Report 6378730-4 (Version None)
Quarter: 2009Q3

REPORT INFORMATION
  Report Type: 
  Country: None (occurrence: None)
  Receive Date: 20090921
  Receipt Date: 20090903
  Transmission Date: 20100115
  Serious: Yes (Life-Threatening, Hospitalization)
  Sender: FDA-Public Use
  Company Number: US-JNJFOC-20090706778

PATIENT
  Age: 82 Year
  Sex: Male

DRUGS (12)
  1. DECITABINE (DECITABINE) LYOPHILIZED POWDER [Suspect]
     Indication: ACUTE MYELOID LEUKAEMIA
     Dosage: 20 MG/M2, INTRAVENOUS ; 20 MG/M2, INTRAVENOUS
     Route: 042
     Dates: start: 20080429, end: 20080503
  2. DECITABINE (DECITABINE) LYOPHILIZED POWDER [Suspect]
     Indication: ACUTE MYELOID LEUKAEMIA
     Dosage: 20 MG/M2, INTRAVENOUS ; 20 MG/M2, INTRAVENOUS
     Route: 042
     Dates: start: 20080609, end: 20080613
  3. VORINOSTAT (VORINOSTAT) UNSPECIFIED [Suspect]
     Indication: ACUTE MYELOID LEUKAEMIA
     Dosage: 400 MG, ORAL
     Route: 048
     Dates: start: 20080614, end: 20080623
  4. VORINOSTAT (VORINOSTAT) UNSPECIFIED [Suspect]
     Indication: ACUTE MYELOID LEUKAEMIA
     Dosage: 400 MG, ORAL
     Route: 048
     Dates: start: 20080604, end: 20080706
  5. VORINOSTAT (VORINOSTAT) UNSPECIFIED [Suspect]
     Dosage: 400 MG, ORAL ; 400 MG, ORAL
     Route: 048
     Dates: start: 20080504, end: 20080517
  6. VORINOSTAT (VORINOSTAT) UNSPECIFIED [Suspect]
     Dosage: 400 MG, ORAL ; 400 MG, ORAL
     Route: 048
     Dates: start: 20080614, end: 20080623
  7. VITAMIN (VITAMINS NOS) [Concomitant]
  8. ACETAMINOPHEN [Concomitant]
  9. ACYCLOVIR [Concomitant]
  10. AMLODIPINE BESYLATE (AMLODIPINE BESILATE) UNSPECIFIED [Concomitant]
  11. ENOXAPARIN SODIUM (ENOXAPARIN SODIUM) UNSPECIFIED [Concomitant]
  12. PANTOPRAZOLE SODIUM [Concomitant]

REACTIONS (18)
  - ABDOMINAL RIGIDITY [None]
  - ASTHENIA [None]
  - BRONCHOPULMONARY ASPERGILLOSIS [None]
  - CHEST PAIN [None]
  - CLOSTRIDIAL INFECTION [None]
  - COUGH [None]
  - DIARRHOEA [None]
  - ESCHERICHIA BACTERAEMIA [None]
  - FATIGUE [None]
  - FEBRILE NEUTROPENIA [None]
  - LIP DISORDER [None]
  - LYMPH NODE PALPABLE [None]
  - ODYNOPHAGIA [None]
  - OROPHARYNGEAL PAIN [None]
  - PLEURITIC PAIN [None]
  - RETCHING [None]
  - THROMBOCYTOPENIA [None]
  - THROMBOSIS [None]
